FAERS Safety Report 7022831-4 (Version None)
Quarter: 2010Q3

REPORT INFORMATION
  Report Type: 
  Country: None (occurrence: None)
  Receive Date: 20100930
  Receipt Date: 20100929
  Transmission Date: 20110219
  Serious: Yes (Life-Threatening)
  Sender: FDA-Public Use
  Company Number: B0670019A

PATIENT
  Age: 5 Year
  Sex: Male

DRUGS (6)
  1. ZIDOVUDINE [Suspect]
     Indication: MALARIA PROPHYLAXIS
     Route: 065
  2. LAMIVUDINE-HIV [Suspect]
     Indication: MALARIA PROPHYLAXIS
  3. BACTRIM [Suspect]
     Indication: MALARIA PROPHYLAXIS
  4. LOPINAVIR/RITONAVIR [Suspect]
     Indication: MALARIA PROPHYLAXIS
     Route: 048
  5. ARTEMETHER + LUMEFANTRINE [Concomitant]
  6. PARACETAMOL [Concomitant]

REACTIONS (1)
  - NEUTROPENIA [None]
